FAERS Safety Report 4815675-2 (Version None)
Quarter: 2005Q4

REPORT INFORMATION
  Report Type: 
  Country: None (occurrence: None)
  Receive Date: 20051027
  Receipt Date: 20051014
  Transmission Date: 20060501
  Serious: Yes (Disabling)
  Sender: FDA-Public Use
  Company Number: 2005S1000306

PATIENT
  Age: 59 Year
  Sex: Male

DRUGS (4)
  1. SORIATANE [Suspect]
     Indication: PSORIASIS
     Dosage: PO
     Route: 048
     Dates: start: 19960101, end: 20050101
  2. HYDROXYZINE [Concomitant]
  3. CARBAMAZEPINE [Concomitant]
  4. VALPROATE SODIUM [Concomitant]

REACTIONS (3)
  - FEMUR FRACTURE [None]
  - INJURY [None]
  - OSTEOPOROSIS [None]
